FAERS Safety Report 11169753 (Version 3)
Quarter: 2015Q3

REPORT INFORMATION
  Report Type: Spontaneous
  Country: US (occurrence: US)
  Receive Date: 20150606
  Receipt Date: 20150716
  Transmission Date: 20151125
  Serious: Yes (Hospitalization, Congenital Anomaly, Other)
  Sender: FDA-Public Use
  Company Number: US-APOTEX-2015AP008012

PATIENT

DRUGS (2)
  1. PAROXETINE HYDROCHLORIDE. [Suspect]
     Active Substance: PAROXETINE HYDROCHLORIDE
     Indication: PRODUCT USED FOR UNKNOWN INDICATION
     Dosage: 20 MG, QD
     Route: 064
  2. PAXIL [Suspect]
     Active Substance: PAROXETINE HYDROCHLORIDE
     Indication: PRODUCT USED FOR UNKNOWN INDICATION
     Route: 064

REACTIONS (12)
  - Fallot^s tetralogy [Unknown]
  - Pulmonary valve stenosis [Unknown]
  - Inguinal hernia [Unknown]
  - Hypospadias [Unknown]
  - Atrial septal defect [Unknown]
  - Congenital anomaly [Unknown]
  - Autism spectrum disorder [Unknown]
  - Patent ductus arteriosus [Unknown]
  - Tracheomalacia [Unknown]
  - Cryptorchism [Unknown]
  - Ventricular septal defect [Unknown]
  - Exposure during pregnancy [Unknown]
